FAERS Safety Report 7465953-6 (Version None)
Quarter: 2011Q2

REPORT INFORMATION
  Report Type: 
  Country: None (occurrence: None)
  Receive Date: 20110509
  Receipt Date: 20100510
  Transmission Date: 20111010
  Serious: No
  Sender: FDA-Public Use
  Company Number: US-ALEXION-A201000537

PATIENT
  Sex: Male

DRUGS (16)
  1. SOLIRIS [Suspect]
     Indication: PAROXYSMAL NOCTURNAL HAEMOGLOBINURIA
     Dosage: 600 MG, QW
     Route: 042
     Dates: start: 20070606, end: 20070627
  2. DESFERAL                           /00062903/ [Concomitant]
     Dosage: 1500 MG, M-W-F-S, QHS
     Route: 058
  3. SENOKOT [Concomitant]
     Indication: CONSTIPATION PROPHYLAXIS
     Dosage: 1 QD
     Route: 048
  4. LASIX [Concomitant]
     Indication: DIURETIC THERAPY
     Dosage: 40 MG, QD
     Route: 048
  5. SIMVASTIN-MEPHA [Concomitant]
     Indication: BLOOD CHOLESTEROL INCREASED
     Dosage: 20 MG, QD
     Route: 048
  6. CALCITROL                          /00508501/ [Concomitant]
     Dosage: 0.5 MG, QD
     Route: 048
  7. VITAMIN E                          /00110501/ [Concomitant]
     Indication: SUPPLEMENTATION THERAPY
     Dosage: 200 IU, QOD
     Route: 048
  8. NITROGLYCERIN [Concomitant]
     Indication: CHEST PAIN
     Dosage: UNK
     Route: 060
  9. SOLIRIS [Suspect]
     Dosage: 900 MG, Q2W
     Route: 042
     Dates: start: 20070703
  10. ATIVAN [Concomitant]
     Indication: ANXIETY
     Dosage: 1/2 TO 1 0.5 MG TABLET, Q4H, PRN
     Route: 048
  11. FOLIC ACID [Concomitant]
     Indication: PAROXYSMAL NOCTURNAL HAEMOGLOBINURIA
     Dosage: 1 MG, QD
     Route: 048
  12. VITAMIN B12                        /00056201/ [Concomitant]
     Indication: SUPPLEMENTATION THERAPY
     Dosage: 1000 UG, QD
     Route: 048
  13. POTASSIUM [Concomitant]
     Indication: SUPPLEMENTATION THERAPY
     Dosage: 30 MEQ, QD
     Route: 048
  14. METOPROLOL TARTRATE [Concomitant]
     Indication: HYPERTENSION
     Dosage: 25 MG, BID
     Route: 048
  15. MINITRAN                           /00003201/ [Concomitant]
     Indication: CHEST PAIN
     Dosage: 0.1 MG/HR, PRN
     Route: 062
  16. TYLENOL (CAPLET) [Concomitant]
     Dosage: 325 MG, PRN, 1-2 TABS
     Route: 048

REACTIONS (3)
  - BLOOD CREATININE INCREASED [None]
  - BLOOD MAGNESIUM INCREASED [None]
  - ASTHENIA [None]
